FAERS Safety Report 10409020 (Version 1)
Quarter: 2014Q3

REPORT INFORMATION
  Report Type: Spontaneous
  Country: CA (occurrence: None)
  Receive Date: 20140825
  Receipt Date: 20140825
  Transmission Date: 20150326
  Serious: Yes (Disabling)
  Sender: FDA-Public Use
  Company Number: None

PATIENT
  Age: 21 Year
  Sex: Female
  Weight: 68.04 kg

DRUGS (1)
  1. NUVARING [Suspect]
     Active Substance: ETHINYL ESTRADIOL\ETONOGESTREL
     Indication: CONTRACEPTION
     Route: 067
     Dates: start: 20120501, end: 20140415

REACTIONS (7)
  - Cold sweat [None]
  - Photosensitivity reaction [None]
  - Nausea [None]
  - Vomiting [None]
  - Malaise [None]
  - Chills [None]
  - Hyperhidrosis [None]
